FAERS Safety Report 6763950-7 (Version None)
Quarter: 2010Q2

REPORT INFORMATION
  Report Type: 
  Country: None (occurrence: None)
  Receive Date: 20100610
  Receipt Date: 20100603
  Transmission Date: 20101027
  Serious: Yes (Other)
  Sender: FDA-Public Use
  Company Number: GB-ASTRAZENECA-2010SE25938

PATIENT
  Age: 48 Year
  Sex: Female
  Weight: 90 kg

DRUGS (2)
  1. OMEPRAZOLE [Suspect]
     Indication: HIATUS HERNIA
     Route: 048
     Dates: start: 20100201, end: 20100505
  2. SYMBICORT [Concomitant]
     Dosage: 1 DF, TWO TIMES A DAY.
     Route: 055

REACTIONS (2)
  - BLOOD CREATININE INCREASED [None]
  - MALAISE [None]
